FAERS Safety Report 5083717-8 (Version None)
Quarter: 2006Q3

REPORT INFORMATION
  Report Type: 
  Country: None (occurrence: None)
  Receive Date: 20060818
  Receipt Date: 20060721
  Transmission Date: 20061208
  Serious: Yes (Other)
  Sender: FDA-Public Use
  Company Number: JP-ROCHE-456750

PATIENT
  Age: 43 Year
  Sex: Female
  Weight: 41 kg

DRUGS (15)
  1. CELLCEPT [Suspect]
     Indication: SYSTEMIC LUPUS ERYTHEMATOSUS
     Route: 048
     Dates: start: 20060424, end: 20060512
  2. CELLCEPT [Suspect]
     Route: 048
     Dates: start: 20060529, end: 20060619
  3. PREDONINE [Concomitant]
     Indication: SYSTEMIC LUPUS ERYTHEMATOSUS
     Route: 048
  4. ASPARA-CA [Concomitant]
     Route: 048
     Dates: start: 20010615
  5. BUFFERIN [Concomitant]
     Route: 048
     Dates: start: 20020715
  6. MEDROL [Concomitant]
     Dosage: MORNING 24MG AND 16MG DURING DAYTIME
     Route: 048
     Dates: start: 20060224
  7. WARFARIN SODIUM [Concomitant]
     Route: 048
     Dates: start: 20060224
  8. MYSLEE [Concomitant]
     Route: 048
     Dates: start: 20060225
  9. 1 CONCOMITANT DRUG [Concomitant]
     Dosage: DRUG REPORTED AS MACMET
     Route: 048
     Dates: start: 20060301
  10. DAONIL [Concomitant]
     Route: 048
     Dates: start: 20060307
  11. MAGNESIUM OXIDE [Concomitant]
     Dosage: DRUG NAME REPORTED AS MAGMITT
     Route: 048
     Dates: start: 20060314
  12. BACTRIM [Concomitant]
     Route: 048
     Dates: start: 20060320
  13. NU-LOTAN [Concomitant]
     Route: 048
     Dates: start: 20060413
  14. CYANOCOBALAMIN [Concomitant]
     Route: 048
     Dates: start: 20060419
  15. PROMAC [Concomitant]
     Route: 048
     Dates: start: 20060609

REACTIONS (3)
  - TUBULOINTERSTITIAL NEPHRITIS [None]
  - VARICELLA [None]
  - WHITE BLOOD CELL COUNT DECREASED [None]
